FAERS Safety Report 9229570 (Version 1)
Quarter: 2013Q2

REPORT INFORMATION
  Report Type: Spontaneous
  Country: DE (occurrence: DE)
  Receive Date: 20130414
  Receipt Date: 20130414
  Transmission Date: 20140414
  Serious: Yes (Hospitalization)
  Sender: FDA-Public Use
  Company Number: DE-B.I. PHARMACEUTICALS,INC./RIDGEFIELD-2013-DE-01038DE

PATIENT
  Age: 83 Year
  Sex: Female

DRUGS (4)
  1. PRADAXA [Suspect]
     Indication: ATRIAL FIBRILLATION
     Dosage: 2X110 MG
     Route: 048
  2. ESOMEPRAZOLE [Concomitant]
     Dosage: 40 MG
     Route: 048
  3. METOPROLOL [Concomitant]
     Indication: TACHYARRHYTHMIA
     Dosage: 32.5
     Route: 048
  4. TOREM [Concomitant]
     Dosage: 10 MG
     Route: 048

REACTIONS (3)
  - Anal abscess [Unknown]
  - Anal haemorrhage [Unknown]
  - Waist circumference increased [Unknown]
